FAERS Safety Report 21957252 (Version 4)
Quarter: 2023Q1

REPORT INFORMATION
  Report Type: Report from Study
  Country: US (occurrence: US)
  Receive Date: 20230206
  Receipt Date: 20230308
  Transmission Date: 20230417
  Serious: Yes (Hospitalization, Other)
  Sender: FDA-Public Use
  Company Number: US-INSMED, INC.-2023-00367-US

PATIENT
  Age: 77 Year
  Sex: Female

DRUGS (8)
  1. ARIKAYCE [Suspect]
     Active Substance: AMIKACIN
     Indication: Mycobacterium avium complex infection
     Dosage: 590 MILLIGRAM, QD
     Route: 055
     Dates: start: 202301, end: 202301
  2. OXYGEN [Concomitant]
     Active Substance: OXYGEN
     Indication: Product used for unknown indication
     Dosage: 2 LITER
     Route: 065
     Dates: start: 2009
  3. OXYGEN [Concomitant]
     Active Substance: OXYGEN
     Dosage: 3 LITER
     Route: 065
  4. OXYGEN [Concomitant]
     Active Substance: OXYGEN
     Dosage: 4 LITER
  5. ALBUTEROL [Concomitant]
     Active Substance: ALBUTEROL
     Indication: Product used for unknown indication
     Dosage: IN THE MORNING AND IN THE EVENING
     Route: 055
     Dates: start: 2013, end: 202301
  6. ALBUTEROL [Concomitant]
     Active Substance: ALBUTEROL
     Dosage: IN THE MORNING
     Route: 055
     Dates: start: 202301
  7. SODIUM CHLORIDE [Suspect]
     Active Substance: SODIUM CHLORIDE
     Indication: Product used for unknown indication
     Dosage: IN THE MORNING AND IN THE EVENING
     Route: 055
     Dates: start: 2013, end: 202301
  8. SODIUM CHLORIDE [Suspect]
     Active Substance: SODIUM CHLORIDE
     Dosage: IN THE MORNING AND IN THE EVENING
     Route: 055
     Dates: start: 202301

REACTIONS (8)
  - Oxygen saturation decreased [Unknown]
  - Hospitalisation [Unknown]
  - Dyspnoea [Unknown]
  - Rehabilitation therapy [Unknown]
  - Productive cough [Unknown]
  - Asthenia [Unknown]
  - Fatigue [Unknown]
  - Therapy interrupted [Unknown]

NARRATIVE: CASE EVENT DATE: 20230101
